FAERS Safety Report 9750076 (Version 2)
Quarter: 2013Q4

REPORT INFORMATION
  Report Type: Spontaneous
  Country: GR (occurrence: GR)
  Receive Date: 20131212
  Receipt Date: 20131212
  Transmission Date: 20140711
  Serious: No
  Sender: FDA-Public Use
  Company Number: GR-GILEAD-GR-CVT-090754

PATIENT
  Sex: Male

DRUGS (3)
  1. RANEXA [Suspect]
     Indication: PRODUCT USED FOR UNKNOWN INDICATION
  2. DIURETICS [Concomitant]
  3. ALDOSTERONE ANTAGONISTS [Concomitant]

REACTIONS (1)
  - Hepatic enzyme increased [Recovered/Resolved]
